FAERS Safety Report 7870655-8 (Version None)
Quarter: 2011Q3

REPORT INFORMATION
  Report Type: 
  Country: None (occurrence: None)
  Receive Date: 20110922
  Receipt Date: 20110418
  Transmission Date: 20111222
  Serious: Yes (Other)
  Sender: FDA-Public Use
  Company Number: 20110323

PATIENT
  Sex: Female

DRUGS (3)
  1. DEXAMETHASONE SODIUM PHOSPHATE [Suspect]
     Indication: PAIN
     Dosage: INTRA-ARTICULAR
     Route: 014
     Dates: start: 20110411, end: 20110411
  2. DEXAMETHASONE SODIUM PHOSPHATE [Suspect]
     Indication: EXOSTOSIS
     Dosage: INTRA-ARTICULAR
     Route: 014
     Dates: start: 20110411, end: 20110411
  3. DEXAMETHASONE SODIUM PHOSPHATE [Suspect]
     Indication: PLANTAR FASCIITIS
     Dosage: INTRA-ARTICULAR
     Route: 014
     Dates: start: 20110411, end: 20110411

REACTIONS (1)
  - ANAPHYLACTOID REACTION [None]
